FAERS Safety Report 9102025 (Version 1)
Quarter: 2013Q1

REPORT INFORMATION
  Report Type: Spontaneous
  Country: ES (occurrence: JP)
  Receive Date: 20130218
  Receipt Date: 20130218
  Transmission Date: 20140127
  Serious: Yes (Other)
  Sender: FDA-Public Use
  Company Number: ES-BAYER-2013-017280

PATIENT
  Age: 60 Year
  Sex: Male

DRUGS (3)
  1. ACARBOSE [Suspect]
     Indication: DIABETES MELLITUS
  2. PIOGLITAZONE [Suspect]
     Indication: DIABETES MELLITUS
  3. GLIMEPIRIDE [Suspect]

REACTIONS (2)
  - Agranulocytosis [Not Recovered/Not Resolved]
  - General physical health deterioration [Not Recovered/Not Resolved]
